FAERS Safety Report 4810934-1 (Version None)
Quarter: 2005Q4

REPORT INFORMATION
  Report Type: 
  Country: None (occurrence: None)
  Receive Date: 20051025
  Receipt Date: 20051011
  Transmission Date: 20060501
  Serious: Yes (Hospitalization, Other)
  Sender: FDA-Public Use
  Company Number: 2005129316

PATIENT
  Age: 75 Year
  Sex: Female
  Weight: 45.3597 kg

DRUGS (14)
  1. DETROL LA [Suspect]
     Indication: HYPERTONIC BLADDER
     Dosage: 2 MG (2 MG, 1 IN 1 D), ORAL
     Route: 048
     Dates: start: 20030301
  2. LOTREL [Concomitant]
  3. BETAPACE [Concomitant]
  4. LIPITOR [Concomitant]
  5. FOSAMAX [Concomitant]
  6. ZANTAC [Concomitant]
  7. CALCIUM (CALCIUM) [Concomitant]
  8. VITAMINS (VITAMINS) [Concomitant]
  9. WARFARIN SODIUM [Concomitant]
  10. TYLENOL PM (DIPHENHYDRAMINE, PARACETAMOL) [Concomitant]
  11. ALL OTHER THERAPEUTIC PRODUCTS (ALL OTHER THERAPEUTIC PRODUCTS) [Concomitant]
  12. ALL OTHER THERAPEUTIC PRODUCTS (ALL OTHER THERAPEUTIC PRODUCTS) [Concomitant]
  13. ALL OTHER THERAPEUTIC PRODUCTS (ALL OTHER THERAPEUTIC PRODUCTS) [Concomitant]
  14. LAXATIVES (LAXATIVES) [Concomitant]

REACTIONS (4)
  - ENURESIS [None]
  - INCONTINENCE [None]
  - SPINAL CORD INFARCTION [None]
  - URINARY TRACT INFECTION [None]
